FAERS Safety Report 7546458-0 (Version None)
Quarter: 2011Q2

REPORT INFORMATION
  Report Type: 
  Country: None (occurrence: None)
  Receive Date: 20110614
  Receipt Date: 20110221
  Transmission Date: 20111010
  Serious: Yes (Hospitalization)
  Sender: FDA-Public Use
  Company Number: US-BAYER-2011-016914

PATIENT
  Age: 68 Year
  Sex: Male

DRUGS (1)
  1. SORAFENIB (RAF KINASE INHIBITOR) [Suspect]
     Indication: HEPATIC NEOPLASM MALIGNANT
     Dosage: 400 MG, BID
     Route: 048
     Dates: start: 20110217, end: 20110304

REACTIONS (5)
  - MYALGIA [None]
  - MYOCARDIAL INFARCTION [None]
  - DISORIENTATION [None]
  - ARTHRALGIA [None]
  - DYSPNOEA [None]
